FAERS Safety Report 8843638 (Version 3)
Quarter: 2012Q4

REPORT INFORMATION
  Report Type: 
  Country: US (occurrence: US)
  Receive Date: 20121016
  Receipt Date: 20121102
  Transmission Date: 20130627
  Serious: Yes (Other)
  Sender: FDA-Public Use
  Company Number: US-ROCHE-1073969

PATIENT
  Sex: Female
  Weight: 95.34 kg

DRUGS (6)
  1. ACCUTANE [Suspect]
     Indication: HIDRADENITIS
     Route: 048
     Dates: start: 19950421, end: 19950621
  2. ACCUTANE [Suspect]
     Route: 048
     Dates: start: 19950724, end: 19950824
  3. ACCUTANE [Suspect]
     Route: 048
     Dates: start: 19990728, end: 20011008
  4. ACCUTANE [Suspect]
     Route: 048
     Dates: start: 2002
  5. SPIRONOLACTONE [Concomitant]
     Indication: HIDRADENITIS
  6. MINOCYCLINE [Concomitant]

REACTIONS (9)
  - Inflammatory bowel disease [Unknown]
  - Depression [Unknown]
  - Crohn^s disease [Unknown]
  - Anal abscess [Unknown]
  - Large intestine polyp [Unknown]
  - Colitis ulcerative [Unknown]
  - Abscess [Unknown]
  - Irritable bowel syndrome [Unknown]
  - Arthritis [Unknown]
